FAERS Safety Report 4986936-1 (Version None)
Quarter: 2006Q2

REPORT INFORMATION
  Report Type: 
  Country: None (occurrence: None)
  Receive Date: 20060501
  Receipt Date: 20060320
  Transmission Date: 20061013
  Serious: Yes (Hospitalization)
  Sender: FDA-Public Use
  Company Number: 2006SE01613

PATIENT
  Age: 24201 Day
  Sex: Male

DRUGS (5)
  1. BLOPRESS [Suspect]
     Indication: HYPERTENSION
     Route: 048
     Dates: start: 20030501, end: 20060303
  2. TOWARAT [Concomitant]
     Indication: HYPERTENSION
     Route: 048
     Dates: start: 20030501, end: 20060303
  3. ASPENON [Concomitant]
     Indication: ARRHYTHMIA
     Route: 048
     Dates: start: 20030501
  4. KETAS [Concomitant]
     Indication: CEREBRAL INFARCTION
     Route: 048
     Dates: start: 20030501, end: 20060303
  5. LORAZEPAM [Concomitant]
     Indication: INSOMNIA
     Route: 048
     Dates: start: 20030501, end: 20060303

REACTIONS (5)
  - ANURIA [None]
  - BLOOD CREATININE INCREASED [None]
  - BLOOD UREA INCREASED [None]
  - DIALYSIS [None]
  - RHABDOMYOLYSIS [None]
